APPROVED DRUG PRODUCT: AMPICILLIN SODIUM
Active Ingredient: AMPICILLIN SODIUM
Strength: EQ 250MG BASE/VIAL
Dosage Form/Route: INJECTABLE;INJECTION
Application: A090354 | Product #001 | TE Code: AP
Applicant: ANTIBIOTICE SA
Approved: Dec 28, 2009 | RLD: No | RS: No | Type: RX